FAERS Safety Report 13798290 (Version 1)
Quarter: 2017Q3

REPORT INFORMATION
  Report Type: Spontaneous
  Country: US (occurrence: US)
  Receive Date: 20170726
  Receipt Date: 20170726
  Transmission Date: 20171127
  Serious: Yes (Hospitalization)
  Sender: FDA-Public Use
  Company Number: None

PATIENT
  Age: 27 Year
  Sex: Female
  Weight: 49 kg

DRUGS (4)
  1. MOMETASONE CREAM [Concomitant]
     Active Substance: MOMETASONE
  2. DOXYCYCLINE. [Suspect]
     Active Substance: DOXYCYCLINE
     Indication: ACNE
  3. PREDNISONE. [Concomitant]
     Active Substance: PREDNISONE
  4. TRIA ETHALONE CREAM [Concomitant]

REACTIONS (2)
  - Stevens-Johnson syndrome [None]
  - Dyspnoea [None]

NARRATIVE: CASE EVENT DATE: 20170117
